FAERS Safety Report 13622363 (Version 3)
Quarter: 2017Q3

REPORT INFORMATION
  Report Type: Spontaneous
  Country: JP (occurrence: JP)
  Receive Date: 20170607
  Receipt Date: 20170829
  Transmission Date: 20171127
  Serious: Yes (Hospitalization, Other)
  Sender: FDA-Public Use
  Company Number: PHJP2017JP017796

PATIENT
  Age: 67 Year
  Sex: Female

DRUGS (11)
  1. PREDONINE [Suspect]
     Active Substance: PREDNISOLONE
     Dosage: 10 MG, QD
     Route: 048
     Dates: start: 20160509
  2. PREDONINE [Suspect]
     Active Substance: PREDNISOLONE
     Indication: IMMUNE THROMBOCYTOPENIC PURPURA
     Dosage: 7 MG, QD
     Route: 048
  3. PREDONINE [Suspect]
     Active Substance: PREDNISOLONE
     Dosage: 5 MG, QD
     Route: 048
     Dates: start: 20160407, end: 20160427
  4. REVOLADE TAB [Suspect]
     Active Substance: ELTROMBOPAG
     Indication: IMMUNE THROMBOCYTOPENIC PURPURA
     Dosage: 12.5 MG, QD
     Route: 048
     Dates: start: 20160311, end: 20160417
  5. REVOLADE TAB [Suspect]
     Active Substance: ELTROMBOPAG
     Dosage: 25 MG, QD
     Route: 048
     Dates: start: 20160418, end: 20160501
  6. REVOLADE TAB [Suspect]
     Active Substance: ELTROMBOPAG
     Dosage: UNK
     Route: 048
     Dates: start: 20160502, end: 20160509
  7. PREDONINE [Suspect]
     Active Substance: PREDNISOLONE
     Dosage: 10 MG, QD
     Route: 048
     Dates: start: 20160428
  8. PREDONINE [Suspect]
     Active Substance: PREDNISOLONE
     Dosage: 6 MG, QD
     Route: 048
  9. PREDONINE [Suspect]
     Active Substance: PREDNISOLONE
     Dosage: 25 MG, QD
     Route: 048
  10. GASTER [Concomitant]
     Active Substance: FAMOTIDINE
     Indication: PRODUCT USED FOR UNKNOWN INDICATION
     Dosage: UNK
     Route: 065
  11. REVOLADE TAB [Suspect]
     Active Substance: ELTROMBOPAG
     Dosage: 12.5 MG, UNK
     Route: 048
     Dates: end: 20170502

REACTIONS (3)
  - Subarachnoid haemorrhage [Recovered/Resolved]
  - Platelet count decreased [Not Recovered/Not Resolved]
  - Drug resistance [Not Recovered/Not Resolved]

NARRATIVE: CASE EVENT DATE: 20160407
